FAERS Safety Report 7701241-8 (Version None)
Quarter: 2011Q3

REPORT INFORMATION
  Report Type: 
  Country: None (occurrence: None)
  Receive Date: 20110819
  Receipt Date: 20110819
  Transmission Date: 20111222
  Serious: Yes (Hospitalization)
  Sender: FDA-Public Use
  Company Number: None

PATIENT
  Age: 41 Year
  Sex: Male

DRUGS (1)
  1. VANCOMYCIN HCL [Suspect]
     Dosage: 1500 MG IV Q8H
     Route: 042
     Dates: start: 20110406, end: 20110428

REACTIONS (7)
  - HEADACHE [None]
  - NEUTROPENIA [None]
  - PYREXIA [None]
  - RASH [None]
  - URTICARIA [None]
  - ANTIBIOTIC LEVEL ABOVE THERAPEUTIC [None]
  - PRURITUS [None]
